FAERS Safety Report 8612792-6 (Version None)
Quarter: 2012Q3

REPORT INFORMATION
  Report Type: 
  Country: None (occurrence: None)
  Receive Date: 20120822
  Receipt Date: 20120126
  Transmission Date: 20120928
  Serious: No
  Sender: FDA-Public Use
  Company Number: US-ASTRAZENECA-2009SE10267

PATIENT
  Age: 57 Year
  Sex: Female

DRUGS (5)
  1. TYLENOL [Concomitant]
  2. SYMBICORT [Suspect]
     Indication: ASTHMA
     Dosage: 80/4.5 2 PUFFS BID
     Route: 055
  3. IBUPROFEN [Concomitant]
  4. ACIPHEX [Concomitant]
  5. ZANTAC [Concomitant]

REACTIONS (12)
  - DIARRHOEA [None]
  - RAYNAUD'S PHENOMENON [None]
  - DRUG INEFFECTIVE [None]
  - GASTRIC DISORDER [None]
  - OROPHARYNGEAL PAIN [None]
  - NASOPHARYNGITIS [None]
  - COUGH [None]
  - APHONIA [None]
  - BACK DISORDER [None]
  - VOMITING [None]
  - SINUSITIS [None]
  - ABDOMINAL PAIN UPPER [None]
